FAERS Safety Report 23970142 (Version 1)
Quarter: 2024Q2

REPORT INFORMATION
  Report Type: Spontaneous
  Country: US (occurrence: US)
  Receive Date: 20240613
  Receipt Date: 20240613
  Transmission Date: 20240716
  Serious: Yes (Disabling, Other)
  Sender: FDA-Public Use
  Company Number: US-MLMSERVICE-20240523-PI074025-00047-2

PATIENT

DRUGS (10)
  1. AMIKACIN [Suspect]
     Active Substance: AMIKACIN
     Indication: Mycobacterium kansasii infection
     Dosage: UNKNOWN
     Route: 065
  2. AMIKACIN [Suspect]
     Active Substance: AMIKACIN
     Dosage: UNKNOWN, WEIGHT-BASED
     Route: 042
  3. AZITHROMYCIN [Concomitant]
     Active Substance: AZITHROMYCIN
     Dosage: 500 MILLIGRAM, QD
     Route: 048
  4. AZITHROMYCIN [Concomitant]
     Active Substance: AZITHROMYCIN
     Indication: Mycobacterium kansasii infection
     Dosage: UNKNOWN
     Route: 065
  5. CLADRIBINE [Concomitant]
     Active Substance: CLADRIBINE
     Indication: Hairy cell leukaemia
     Dosage: UNKNOWN
     Route: 065
  6. ETHAMBUTOL [Concomitant]
     Active Substance: ETHAMBUTOL HYDROCHLORIDE
     Dosage: 1200 MILLIGRAM, QD
     Route: 048
  7. ETHAMBUTOL [Concomitant]
     Active Substance: ETHAMBUTOL HYDROCHLORIDE
     Indication: Mycobacterium kansasii infection
     Dosage: UNKNOWN
     Route: 065
  8. RIFAMPIN [Concomitant]
     Active Substance: RIFAMPIN
     Indication: Mycobacterium kansasii infection
     Dosage: 600 MILLIGRAM, QD
     Route: 048
  9. RIFAMPIN [Concomitant]
     Active Substance: RIFAMPIN
     Dosage: UNK
     Route: 065
  10. RITUXIMAB [Concomitant]
     Active Substance: RITUXIMAB
     Indication: Hairy cell leukaemia
     Dosage: UNKNOWN

REACTIONS (2)
  - Altered pitch perception [Unknown]
  - Tinnitus [Unknown]
